FAERS Safety Report 10768748 (Version 2)
Quarter: 2015Q3

REPORT INFORMATION
  Report Type: Spontaneous
  Country: US (occurrence: US)
  Receive Date: 20150206
  Receipt Date: 20150819
  Transmission Date: 20151125
  Serious: No
  Sender: FDA-Public Use
  Company Number: US-PFIZER INC-2015045472

PATIENT
  Sex: Male

DRUGS (14)
  1. ERYTHROMYCIN. [Suspect]
     Active Substance: ERYTHROMYCIN
     Dosage: UNK
  2. ALEVE [Suspect]
     Active Substance: NAPROXEN SODIUM
     Dosage: UNK
  3. CARDIZEM [Suspect]
     Active Substance: DILTIAZEM HYDROCHLORIDE
     Dosage: UNK
  4. CALAN [Suspect]
     Active Substance: VERAPAMIL HYDROCHLORIDE
     Dosage: UNK
  5. NORVASC [Suspect]
     Active Substance: AMLODIPINE BESYLATE
     Dosage: UNK
  6. ACEON [Suspect]
     Active Substance: PERINDOPRIL ERBUMINE
     Dosage: UNK
  7. TAMBOCOR [Suspect]
     Active Substance: FLECAINIDE ACETATE
     Dosage: UNK
  8. PROCAN [Suspect]
     Active Substance: PROCAINAMIDE HYDROCHLORIDE
     Dosage: UNK
  9. QUINAGLUTE [Suspect]
     Active Substance: QUINIDINE GLUCONATE
     Dosage: UNK
  10. BETAPACE [Suspect]
     Active Substance: SOTALOL HYDROCHLORIDE
     Dosage: UNK
  11. MOTRIN [Suspect]
     Active Substance: IBUPROFEN
     Dosage: UNK
  12. INDERAL [Suspect]
     Active Substance: PROPRANOLOL HYDROCHLORIDE
     Dosage: UNK
  13. QUINIDINE [Suspect]
     Active Substance: QUINIDINE
     Dosage: UNK
  14. RYTHMOL [Suspect]
     Active Substance: PROPAFENONE HYDROCHLORIDE
     Dosage: UNK

REACTIONS (1)
  - Drug hypersensitivity [Unknown]
